FAERS Safety Report 15922329 (Version 1)
Quarter: 2019Q1

REPORT INFORMATION
  Report Type: Spontaneous
  Country: JP (occurrence: JP)
  Receive Date: 20190206
  Receipt Date: 20190206
  Transmission Date: 20190417
  Serious: Yes (Life-Threatening, Other)
  Sender: FDA-Public Use
  Company Number: JP-ROCHE-2191796

PATIENT
  Age: 77 Year
  Sex: Female

DRUGS (6)
  1. TAXOL [Concomitant]
     Active Substance: PACLITAXEL
     Indication: OVARIAN CANCER
     Route: 041
     Dates: start: 20180226, end: 20180319
  2. ALOXI [Concomitant]
     Active Substance: PALONOSETRON HYDROCHLORIDE
     Route: 065
     Dates: start: 20180226, end: 20180319
  3. NEDAPLATIN [Concomitant]
     Active Substance: NEDAPLATIN
     Indication: OVARIAN CANCER
     Route: 041
     Dates: start: 20180226, end: 20180319
  4. FAMOTIDINE. [Concomitant]
     Active Substance: FAMOTIDINE
     Route: 065
     Dates: start: 20180226, end: 20180319
  5. AVASTIN [Suspect]
     Active Substance: BEVACIZUMAB
     Indication: OVARIAN CANCER
     Dosage: DATE OF MOST RECENT DOSE: 13/JUN/2018
     Route: 041
     Dates: start: 20180226
  6. DEXART [Concomitant]
     Active Substance: DEXAMETHASONE SODIUM PHOSPHATE
     Route: 065
     Dates: start: 20180226, end: 20180319

REACTIONS (5)
  - Upper gastrointestinal perforation [Recovered/Resolved]
  - Metastases to peritoneum [Not Recovered/Not Resolved]
  - Abdominal infection [Unknown]
  - Mesenteric abscess [Not Recovered/Not Resolved]
  - Peritoneal abscess [Not Recovered/Not Resolved]

NARRATIVE: CASE EVENT DATE: 20180704
